FAERS Safety Report 5127541-6 (Version None)
Quarter: 2006Q4

REPORT INFORMATION
  Report Type: 
  Country: None (occurrence: None)
  Receive Date: 20061011
  Receipt Date: 20060322
  Transmission Date: 20070319
  Serious: Yes (Other)
  Sender: FDA-Public Use
  Company Number: 2006BH006874

PATIENT

DRUGS (5)
  1. DEXAMETHASONE TAB [Suspect]
     Indication: MULTIPLE MYELOMA
     Dosage: 40 MG,
  2. THALIDOMIDE            (THALIDOMIDE) [Suspect]
     Indication: MULTIPLE MYELOMA
     Dosage: 100 MG; CONTINUOUS;
  3. CAELYX (R) (NO. PREF. NAME) [Suspect]
     Indication: MULTIPLE MYELOMA
     Dosage: 40 MG/M**2; EVERY 4 WEEK;
  4. WARFARIN SODIUM [Concomitant]
  5. CIPROFLOXACIN HCL [Concomitant]

REACTIONS (2)
  - DEEP VEIN THROMBOSIS [None]
  - PULMONARY EMBOLISM [None]
